FAERS Safety Report 13168068 (Version 1)
Quarter: 2017Q1

REPORT INFORMATION
  Report Type: Spontaneous
  Country: ES (occurrence: ES)
  Receive Date: 20170131
  Receipt Date: 20170131
  Transmission Date: 20170428
  Serious: Yes (Hospitalization, Other)
  Sender: FDA-Public Use
  Company Number: ES-GILEAD-2017-0253689

PATIENT
  Age: 64 Year
  Sex: Female

DRUGS (11)
  1. SEGURIL [Concomitant]
     Active Substance: FUROSEMIDE
     Dosage: 40 MG: 1/2 - 1 TABLET EVERY OTHER DAY
  2. HUMATIN [Concomitant]
     Active Substance: PAROMOMYCIN SULFATE
     Dosage: 1/2 BOTTLE EVERY 8 HOURS
  3. SUMIAL [Concomitant]
     Active Substance: PROPRANOLOL HYDROCHLORIDE
     Dosage: 10 MG: 1-0-1
  4. HIDROFEROL [Concomitant]
     Active Substance: CALCIFEDIOL
  5. PROLIA [Concomitant]
     Active Substance: DENOSUMAB
     Dosage: 60 MG, 1 INJECTION EVERY 6 MONTHS
     Route: 058
  6. ALDACTONE [Concomitant]
     Active Substance: SPIRONOLACTONE
     Dosage: 100 MG, QD
  7. EUTIROX [Concomitant]
     Active Substance: LEVOTHYROXINE SODIUM
     Dosage: 100 MG, QD; 125 MG SATURDAYS AND SUNDAYS
  8. ZINNAT                             /00454602/ [Concomitant]
     Active Substance: CEFUROXIME SODIUM
     Dosage: 500 MG, BID
     Dates: end: 20170104
  9. PALEXIA [Concomitant]
     Active Substance: TAPENTADOL HYDROCHLORIDE
     Dosage: 25 MG, BID
  10. EVIPLERA [Suspect]
     Active Substance: EMTRICITABINE\RILPIVIRINE\TENOFOVIR DISOPROXIL FUMARATE
     Indication: PRODUCT USED FOR UNKNOWN INDICATION
     Dosage: 600/1000MG QD
     Route: 065
  11. DEMILOS [Concomitant]
     Active Substance: CALCIUM CARBONATE\CHOLECALCIFEROL
     Dosage: 1 DF, QD

REACTIONS (5)
  - Tibia fracture [Unknown]
  - Osteoporosis [Unknown]
  - Femur fracture [Unknown]
  - Urinary tract infection [Unknown]
  - Bone disorder [Unknown]
